FAERS Safety Report 12554653 (Version 1)
Quarter: 2016Q3

REPORT INFORMATION
  Report Type: Report from Study
  Country: BR (occurrence: BR)
  Receive Date: 20160713
  Receipt Date: 20160713
  Transmission Date: 20161109
  Serious: Yes (Other)
  Sender: FDA-Public Use
  Company Number: BR-ABBVIE-16K-020-1672283-00

PATIENT
  Sex: Female
  Weight: 72 kg

DRUGS (12)
  1. SOMALGIN [Concomitant]
     Active Substance: ASPIRIN\DIHYDROXYALUMINUM AMINOACETATE ANHYDROUS\MAGNESIUM CARBONATE
     Indication: BLOOD PRESSURE MEASUREMENT
     Route: 048
     Dates: start: 2012
  2. TRIDEVIT [Concomitant]
     Indication: VITAMIN D
     Route: 048
     Dates: start: 201602
  3. NORIPURUM [Concomitant]
     Active Substance: IRON POLYMALTOSE
     Indication: ANAEMIA
     Route: 048
     Dates: start: 201605
  4. HUMIRA [Suspect]
     Active Substance: ADALIMUMAB
     Indication: RHEUMATOID ARTHRITIS
     Route: 058
     Dates: start: 20160309
  5. ACTONEL [Concomitant]
     Active Substance: RISEDRONATE SODIUM
     Indication: OSTEOPOROSIS
     Route: 048
     Dates: start: 2014
  6. GALVUS [Concomitant]
     Active Substance: VILDAGLIPTIN
     Indication: DIABETES MELLITUS
     Route: 048
     Dates: start: 2006
  7. MICARDIS HCT [Concomitant]
     Active Substance: HYDROCHLOROTHIAZIDE\TELMISARTAN
     Indication: BLOOD PRESSURE MEASUREMENT
     Route: 048
     Dates: start: 2012
  8. FOLIC ACID. [Concomitant]
     Active Substance: FOLIC ACID
     Indication: ARTHRITIS
     Route: 048
     Dates: start: 201605
  9. METHOTREXATE. [Concomitant]
     Active Substance: METHOTREXATE
     Indication: ARTHRITIS
     Route: 048
     Dates: start: 201605
  10. NORVASC [Concomitant]
     Active Substance: AMLODIPINE BESYLATE
     Indication: BLOOD PRESSURE MEASUREMENT
     Route: 048
     Dates: start: 2012
  11. OSCAL [Concomitant]
     Active Substance: CALCIUM CARBONATE
     Indication: OSTEOPOROSIS
     Route: 048
     Dates: start: 201605
  12. NEBIVOLOL. [Concomitant]
     Active Substance: NEBIVOLOL
     Indication: BLOOD PRESSURE MEASUREMENT
     Route: 048
     Dates: start: 2012

REACTIONS (4)
  - Pollakiuria [Not Recovered/Not Resolved]
  - Anaemia [Unknown]
  - Nephrolithiasis [Not Recovered/Not Resolved]
  - Renal mass [Not Recovered/Not Resolved]

NARRATIVE: CASE EVENT DATE: 2016
